FAERS Safety Report 10025506 (Version 4)
Quarter: 2014Q2

REPORT INFORMATION
  Report Type: Spontaneous
  Country: CA (occurrence: CA)
  Receive Date: 20140320
  Receipt Date: 20140501
  Transmission Date: 20141212
  Serious: Yes (Death, Hospitalization, Other)
  Sender: FDA-Public Use
  Company Number: CA-JNJFOC-20140310848

PATIENT
  Age: 82 Year
  Sex: Male
  Weight: 67.4 kg

DRUGS (16)
  1. XARELTO [Suspect]
     Indication: CEREBROVASCULAR ACCIDENT PROPHYLAXIS
     Route: 048
     Dates: start: 20140226
  2. XARELTO [Suspect]
     Indication: CEREBROVASCULAR ACCIDENT PROPHYLAXIS
     Route: 048
     Dates: start: 20140227, end: 20140303
  3. XARELTO [Suspect]
     Indication: ATRIAL FIBRILLATION
     Route: 048
     Dates: start: 20140226
  4. XARELTO [Suspect]
     Indication: ATRIAL FIBRILLATION
     Route: 048
     Dates: start: 20140227, end: 20140303
  5. CELEBREX [Concomitant]
     Route: 065
     Dates: end: 20140303
  6. SLOW-K [Concomitant]
     Route: 065
  7. ALLOPURINOL [Concomitant]
     Route: 065
  8. LIPITOR [Concomitant]
     Route: 065
  9. METFORMIN [Concomitant]
     Route: 065
  10. ALTACE [Concomitant]
     Route: 065
     Dates: end: 20140303
  11. CIALIS [Concomitant]
     Route: 065
  12. TECTA [Concomitant]
     Route: 065
  13. PARACETAMOL [Concomitant]
     Route: 065
  14. METOPROLOL [Concomitant]
     Route: 065
  15. CETIRIZINE [Concomitant]
     Route: 065
  16. SERC [Concomitant]
     Route: 065

REACTIONS (7)
  - Hepatic failure [Fatal]
  - Renal failure [Fatal]
  - Back pain [Unknown]
  - Abasia [Unknown]
  - Confusional state [Unknown]
  - Acidosis [Unknown]
  - C-reactive protein increased [Unknown]
